FAERS Safety Report 10399519 (Version 1)
Quarter: 2014Q3

REPORT INFORMATION
  Report Type: Spontaneous
  Country: DE (occurrence: DE)
  Receive Date: 20140821
  Receipt Date: 20140821
  Transmission Date: 20150326
  Serious: Yes (Other)
  Sender: FDA-Public Use
  Company Number: DE-INCYTE CORPORATION-2014IN002355

PATIENT
  Sex: Female

DRUGS (3)
  1. VITAMIN B12 [Suspect]
     Active Substance: CYANOCOBALAMIN
     Indication: VITAMIN B12 DEFICIENCY
     Dosage: UNK UNK, UNK
     Route: 065
     Dates: start: 20140804
  2. JAKAFI [Suspect]
     Active Substance: RUXOLITINIB
     Indication: MYELOFIBROSIS
     Dosage: UNK UNK, UNK
     Route: 065
     Dates: start: 2011
  3. JAKAFI [Suspect]
     Active Substance: RUXOLITINIB
     Dosage: 5 MG, BID
     Route: 065

REACTIONS (4)
  - Hepatomegaly [Unknown]
  - Thrombocytopenia [Unknown]
  - Vitamin B12 deficiency [Unknown]
  - Splenomegaly [Unknown]
